FAERS Safety Report 4372502-8 (Version None)
Quarter: 2004Q2

REPORT INFORMATION
  Report Type: 
  Country: None (occurrence: None)
  Receive Date: 20040601
  Receipt Date: 20040420
  Transmission Date: 20050107
  Serious: No
  Sender: FDA-Public Use
  Company Number: 701891

PATIENT
  Age: 34 Year
  Sex: Female
  Weight: 50.8029 kg

DRUGS (1)
  1. AMEVIVE [Suspect]
     Indication: PSORIASIS
     Dosage: 15 MG QW IM
     Route: 030
     Dates: start: 20040412

REACTIONS (3)
  - CHILLS [None]
  - COUGH [None]
  - PHARYNGOLARYNGEAL PAIN [None]
